FAERS Safety Report 8551501-6 (Version None)
Quarter: 2012Q3

REPORT INFORMATION
  Report Type: 
  Country: None (occurrence: None)
  Receive Date: 20120730
  Receipt Date: 20120214
  Transmission Date: 20120928
  Serious: No
  Sender: FDA-Public Use
  Company Number: US-ALLERGAN-1202185US

PATIENT
  Sex: Female

DRUGS (3)
  1. LATISSE [Suspect]
     Dosage: UNK
     Route: 061
     Dates: start: 20110201, end: 20110101
  2. LATISSE [Suspect]
     Indication: GROWTH OF EYELASHES
     Dosage: UNK
     Route: 061
     Dates: start: 20111201
  3. VISINE                             /00256502/ [Concomitant]
     Indication: EYE IRRITATION
     Dosage: UNK
     Route: 047

REACTIONS (2)
  - DRUG INEFFECTIVE [None]
  - INCORRECT DOSE ADMINISTERED [None]
